FAERS Safety Report 16199086 (Version 1)
Quarter: 2019Q2

REPORT INFORMATION
  Report Type: Spontaneous
  Country: RO (occurrence: RO)
  Receive Date: 20190415
  Receipt Date: 20190415
  Transmission Date: 20190711
  Serious: Yes (Other)
  Sender: FDA-Public Use
  Company Number: RO-CHIESI USA, INC.-RO-2019CHI000150

PATIENT
  Sex: Female
  Weight: .55 kg

DRUGS (1)
  1. PORACTANT ALFA [Suspect]
     Active Substance: PORACTANT ALFA
     Indication: PRODUCT USED FOR UNKNOWN INDICATION
     Dosage: 200 MG/KG, SINGLE
     Route: 039

REACTIONS (2)
  - Infantile apnoea [Unknown]
  - Cardiac arrest [Unknown]
